FAERS Safety Report 6634076-8 (Version None)
Quarter: 2010Q1

REPORT INFORMATION
  Report Type: 
  Country: None (occurrence: None)
  Receive Date: 20100315
  Receipt Date: 20100309
  Transmission Date: 20100710
  Serious: Yes (Death, Life-Threatening, Hospitalization, Other)
  Sender: FDA-Public Use
  Company Number: US-CELGENEUS-163-50794-10022013

PATIENT
  Sex: Female
  Weight: 41 kg

DRUGS (3)
  1. VIDAZA [Suspect]
     Route: 058
     Dates: start: 20090727, end: 20100204
  2. TARCEVA [Suspect]
     Route: 048
     Dates: start: 20090727, end: 20100207
  3. ALEVE (CAPLET) [Concomitant]
     Indication: PAIN
     Dosage: 1-2 TABLETS
     Route: 048

REACTIONS (8)
  - ATRIAL FIBRILLATION [None]
  - DEATH [None]
  - DEEP VEIN THROMBOSIS [None]
  - HAEMOPTYSIS [None]
  - PULMONARY EMBOLISM [None]
  - RESPIRATORY FAILURE [None]
  - SYNCOPE [None]
  - TRANSIENT ISCHAEMIC ATTACK [None]
